FAERS Safety Report 21404823 (Version 1)
Quarter: 2022Q3

REPORT INFORMATION
  Report Type: Spontaneous
  Country: US (occurrence: None)
  Receive Date: 20220930
  Receipt Date: 20220930
  Transmission Date: 20221027
  Serious: Yes (Life-Threatening, Hospitalization, Other)
  Sender: FDA-Public Use
  Company Number: None

PATIENT
  Age: 79 Year
  Sex: Male

DRUGS (1)
  1. EMPAGLIFLOZIN [Suspect]
     Active Substance: EMPAGLIFLOZIN
     Indication: Diabetes mellitus
     Dosage: 1 TAB EVERY DAY PO
     Route: 048
     Dates: start: 20201026, end: 20220729

REACTIONS (6)
  - Asthenia [None]
  - Decreased appetite [None]
  - Hypophagia [None]
  - Euglycaemic diabetic ketoacidosis [None]
  - Urinary tract infection [None]
  - Acidosis [None]

NARRATIVE: CASE EVENT DATE: 20220730
